FAERS Safety Report 7778829-1 (Version None)
Quarter: 2011Q3

REPORT INFORMATION
  Report Type: 
  Country: None (occurrence: None)
  Receive Date: 20110926
  Receipt Date: 20110822
  Transmission Date: 20111222
  Serious: Yes (Hospitalization, Other)
  Sender: FDA-Public Use
  Company Number: US-ACTELION-A-NJ2011-52653

PATIENT

DRUGS (8)
  1. TRACLEER [Suspect]
     Dosage: 125 MG, BID
     Route: 048
     Dates: start: 20020605, end: 20030402
  2. CORTICOSTEROID NOS [Concomitant]
  3. TRACLEER [Suspect]
     Dosage: 250 MG, BID
     Route: 048
     Dates: start: 20030403, end: 20110105
  4. REVATIO [Concomitant]
  5. NEXIUM [Concomitant]
  6. OXYGEN [Concomitant]
  7. TRACLEER [Suspect]
     Indication: PULMONARY ARTERIAL HYPERTENSION
     Dosage: 125 MG, BID
     Route: 048
     Dates: start: 20110204, end: 20110805
  8. COUMADIN [Concomitant]

REACTIONS (6)
  - ALANINE AMINOTRANSFERASE INCREASED [None]
  - LIVER FUNCTION TEST ABNORMAL [None]
  - BLOOD ALKALINE PHOSPHATASE INCREASED [None]
  - ASPARTATE AMINOTRANSFERASE INCREASED [None]
  - BLOOD BILIRUBIN INCREASED [None]
  - PROTHROMBIN TIME ABNORMAL [None]
